FAERS Safety Report 16367433 (Version 1)
Quarter: 2019Q2

REPORT INFORMATION
  Report Type: Spontaneous
  Country: US (occurrence: US)
  Receive Date: 20190529
  Receipt Date: 20190529
  Transmission Date: 20190711
  Serious: No
  Sender: FDA-Public Use
  Company Number: US-MYLANLABS-2019M1044684

PATIENT
  Sex: Female
  Weight: 66 kg

DRUGS (1)
  1. RIVASTIGMINE TRANSDERMAL SYSTEM [Suspect]
     Active Substance: RIVASTIGMINE
     Indication: EARLY ONSET FAMILIAL ALZHEIMER^S DISEASE
     Dosage: UNK
     Route: 062
     Dates: start: 20190205

REACTIONS (1)
  - Nasopharyngitis [Recovering/Resolving]
